FAERS Safety Report 11952465 (Version 2)
Quarter: 2016Q1

REPORT INFORMATION
  Report Type: Spontaneous
  Country: IT (occurrence: IT)
  Receive Date: 20160126
  Receipt Date: 20160208
  Transmission Date: 20160526
  Serious: Yes (Death)
  Sender: FDA-Public Use
  Company Number: IT-MEDA-2016010126

PATIENT
  Age: 72 Year
  Sex: Male
  Weight: 62 kg

DRUGS (4)
  1. ALDACTONE [Suspect]
     Active Substance: SPIRONOLACTONE
     Route: 048
  2. FOLINA [Concomitant]
     Active Substance: FOLIC ACID
  3. TORADIUR [Suspect]
     Active Substance: TORSEMIDE
     Route: 048
  4. HARVONI [Suspect]
     Active Substance: LEDIPASVIR\SOFOSBUVIR
     Indication: CHRONIC HEPATITIS C
     Dosage: 490 MG
     Route: 048
     Dates: start: 20151027, end: 20151228

REACTIONS (5)
  - Atrial fibrillation [Fatal]
  - Circulatory collapse [Fatal]
  - Melaena [Fatal]
  - Anaemia [Fatal]
  - Hepatorenal syndrome [Fatal]

NARRATIVE: CASE EVENT DATE: 20151215
